FAERS Safety Report 13831525 (Version 3)
Quarter: 2017Q4

REPORT INFORMATION
  Report Type: Spontaneous
  Country: JP (occurrence: JP)
  Receive Date: 20170803
  Receipt Date: 20171016
  Transmission Date: 20180320
  Serious: Yes (Death, Hospitalization, Other)
  Sender: FDA-Public Use
  Company Number: JP-MYLANLABS-2017M1048138

PATIENT
  Sex: Male
  Weight: 62 kg

DRUGS (5)
  1. CISPLATIN. [Suspect]
     Active Substance: CISPLATIN
     Indication: SMALL CELL LUNG CANCER
     Route: 065
  2. AMPICILLIN [Suspect]
     Active Substance: AMPICILLIN
     Indication: PRODUCT USED FOR UNKNOWN INDICATION
     Dosage: 2G
     Route: 065
  3. ETOPOSIDE. [Suspect]
     Active Substance: ETOPOSIDE
     Indication: SMALL CELL LUNG CANCER
     Route: 065
  4. IRINOTECAN HYDROCHLORIDE INJ. 40MG ^NK^ [Suspect]
     Active Substance: IRINOTECAN HYDROCHLORIDE
     Indication: SMALL CELL LUNG CANCER
     Dosage: 80 MG/M2, CYCLE
     Route: 065
  5. AMRUBICIN [Suspect]
     Active Substance: AMRUBICIN
     Indication: SMALL CELL LUNG CANCER
     Route: 065

REACTIONS (7)
  - Pneumonia pneumococcal [Fatal]
  - Leukopenia [Unknown]
  - Septic shock [Fatal]
  - Acute kidney injury [Fatal]
  - Acute respiratory distress syndrome [Unknown]
  - Neutrophil count decreased [Unknown]
  - Disseminated intravascular coagulation [Unknown]
